FAERS Safety Report 6011681-3 (Version None)
Quarter: 2008Q4

REPORT INFORMATION
  Report Type: 
  Country: None (occurrence: None)
  Receive Date: 20081217
  Receipt Date: 20081217
  Transmission Date: 20090506
  Serious: Yes (Hospitalization)
  Sender: FDA-Public Use
  Company Number: None

PATIENT
  Age: 32 Year
  Sex: Female
  Weight: 58.9676 kg

DRUGS (1)
  1. NEXIUM [Suspect]
     Indication: FLATULENCE
     Dosage: 40MG 2X A DAY PO
     Route: 048
     Dates: start: 20080904, end: 20080908

REACTIONS (2)
  - OCULAR ICTERUS [None]
  - PARAESTHESIA [None]
